FAERS Safety Report 6774268-0 (Version None)
Quarter: 2010Q2

REPORT INFORMATION
  Report Type: 
  Country: None (occurrence: None)
  Receive Date: 20100617
  Receipt Date: 20100609
  Transmission Date: 20101027
  Serious: Yes (Other)
  Sender: FDA-Public Use
  Company Number: ES-BAYER-201028129GPV

PATIENT

DRUGS (3)
  1. SORAFENIB [Suspect]
     Indication: SARCOMA
     Route: 048
  2. IFOSFAMIDE [Suspect]
     Indication: SARCOMA
     Route: 042
  3. MESNA [Concomitant]
     Indication: SARCOMA
     Route: 042

REACTIONS (1)
  - ENCEPHALOPATHY [None]
